FAERS Safety Report 4956387-4 (Version None)
Quarter: 2006Q1

REPORT INFORMATION
  Report Type: 
  Country: None (occurrence: None)
  Receive Date: 20060323
  Receipt Date: 20060310
  Transmission Date: 20060701
  Serious: Yes (Hospitalization)
  Sender: FDA-Public Use
  Company Number: 2006035433

PATIENT
  Age: 84 Year
  Sex: Female
  Weight: 4 kg

DRUGS (10)
  1. SOLU-MEDROL [Suspect]
     Indication: ILL-DEFINED DISORDER
     Dosage: 80 MG (CYCLICAL), INTRAVENOUS
     Route: 042
     Dates: start: 20060214, end: 20060214
  2. PACLITAXEL [Suspect]
     Indication: ADENOCARCINOMA
     Dosage: 150 MG (CYCLICAL), INTRAVENOUS
     Route: 042
     Dates: start: 20060214, end: 20060214
  3. CARBOPLATIN [Concomitant]
  4. SPASFON (PHLOROGLUCINOL, TRIMETHYLPHLOROGLUCINOL) [Concomitant]
  5. ACETAMINOPHEN [Concomitant]
  6. ZOPICLONE (ZOPICLONE) [Concomitant]
  7. LANSOPRAZOLE [Concomitant]
  8. ONDANSETRON [Concomitant]
  9. DEXCHLORPHENIRAMINE MALEATE [Concomitant]
  10. RANITIDINE [Concomitant]

REACTIONS (4)
  - BACK PAIN [None]
  - BLOOD PRESSURE INCREASED [None]
  - DYSPNOEA [None]
  - HYPERHIDROSIS [None]
